FAERS Safety Report 8647852 (Version 2)
Quarter: 2012Q4

REPORT INFORMATION
  Report Type: 
  Country: US (occurrence: US)
  Receive Date: 20120703
  Receipt Date: 20121206
  Transmission Date: 20130627
  Serious: Yes (Other)
  Sender: FDA-Public Use
  Company Number: US-ROCHE-791407

PATIENT
  Age: 16 Year
  Sex: Male
  Weight: 61.29 kg

DRUGS (2)
  1. ACCUTANE [Suspect]
     Indication: ACNE
     Route: 048
     Dates: start: 20021010, end: 20021023
  2. ACCUTANE [Suspect]
     Route: 048
     Dates: start: 200302, end: 200304

REACTIONS (7)
  - Inflammatory bowel disease [Unknown]
  - Proctitis ulcerative [Unknown]
  - Stress [Unknown]
  - Irritable bowel syndrome [Unknown]
  - Lip dry [Unknown]
  - Epistaxis [Unknown]
  - Cheilitis [Unknown]
